FAERS Safety Report 25358630 (Version 2)
Quarter: 2025Q2

REPORT INFORMATION
  Report Type: Spontaneous
  Country: US (occurrence: US)
  Receive Date: 20250526
  Receipt Date: 20250626
  Transmission Date: 20250716
  Serious: Yes (Other)
  Sender: APOTEX
  Company Number: US-APOTEX-2025AP007652

PATIENT
  Sex: Male

DRUGS (2)
  1. OFLOXACIN OTIC [Suspect]
     Active Substance: OFLOXACIN
     Indication: Ear infection
     Dosage: 3 DOSAGE FORM,QD IN LEFT EAR
     Route: 001
     Dates: start: 20250515
  2. METFORMIN [Concomitant]
     Active Substance: METFORMIN HYDROCHLORIDE
     Indication: Diabetes mellitus
     Dosage: 500 MILLIGRAM, QD
     Route: 048

REACTIONS (3)
  - Loss of consciousness [Recovering/Resolving]
  - Tympanic membrane perforation [Recovering/Resolving]
  - Hypoacusis [Recovering/Resolving]

NARRATIVE: CASE EVENT DATE: 20250515
